FAERS Safety Report 22252690 (Version 2)
Quarter: 2023Q2

REPORT INFORMATION
  Report Type: Report from Study
  Country: US (occurrence: US)
  Receive Date: 20230426
  Receipt Date: 20230516
  Transmission Date: 20230722
  Serious: Yes (Hospitalization)
  Sender: FDA-Public Use
  Company Number: US-PFIZER INC-PV202300072726

PATIENT
  Age: 50 Year
  Sex: Male
  Weight: 71.7 kg

DRUGS (9)
  1. CYTARABINE [Suspect]
     Active Substance: CYTARABINE
     Indication: Acute myeloid leukaemia
     Dosage: 2000 MG/M2, CYCLE 1
     Route: 042
     Dates: start: 20230217
  2. CYTARABINE [Suspect]
     Active Substance: CYTARABINE
     Indication: Myelodysplastic syndrome
     Dosage: 2000 MG/M2, CYCLE 2
     Route: 042
     Dates: start: 20230330
  3. FLUDARABINE [Suspect]
     Active Substance: FLUDARABINE PHOSPHATE
     Indication: Acute myeloid leukaemia
     Dosage: 30 MG/M2, CYCLE 1
     Route: 042
     Dates: start: 20230217
  4. FLUDARABINE [Suspect]
     Active Substance: FLUDARABINE PHOSPHATE
     Indication: Myelodysplastic syndrome
     Dosage: 30 MG/M2, CYCLE 2
     Route: 042
     Dates: start: 20230330
  5. NKX-101 [Suspect]
     Active Substance: NKX-101
     Indication: Acute myeloid leukaemia
     Dosage: 1.5 X10*8 VIABLE ACR AND NK CELLS, CYCLE 1
     Route: 042
     Dates: start: 20230224, end: 20230224
  6. NKX-101 [Suspect]
     Active Substance: NKX-101
     Indication: Myelodysplastic syndrome
     Dosage: 1.5 X10*8 VIABLE ACR AND NK CELLS, CYCLE 1
     Route: 042
     Dates: start: 20230306, end: 20230306
  7. NKX-101 [Suspect]
     Active Substance: NKX-101
     Dosage: 1.5 X10*8 VIABLE ACR AND NK CELLS, CYCLE 1
     Route: 042
     Dates: start: 20230313, end: 20230313
  8. NKX-101 [Suspect]
     Active Substance: NKX-101
     Dosage: 1.5 X10*8 VIABLE ACR AND NK CELLS, CYCLE 2
     Route: 042
     Dates: start: 20230407, end: 20230407
  9. POSACONAZOLE [Concomitant]
     Active Substance: POSACONAZOLE
     Indication: Antifungal prophylaxis
     Dosage: UNK
     Dates: end: 20230413

REACTIONS (1)
  - Gastrointestinal haemorrhage [Recovered/Resolved]

NARRATIVE: CASE EVENT DATE: 20230414
